FAERS Safety Report 6892395-4 (Version None)
Quarter: 2010Q3

REPORT INFORMATION
  Report Type: 
  Country: None (occurrence: None)
  Receive Date: 20100731
  Receipt Date: 20080501
  Transmission Date: 20110219
  Serious: No
  Sender: FDA-Public Use
  Company Number: US-PFIZER INC-2008039546

PATIENT
  Sex: Female

DRUGS (5)
  1. AMLODIPINE [Suspect]
     Indication: HYPERTENSION
     Route: 048
     Dates: start: 20080101, end: 20080401
  2. NORVASC [Concomitant]
  3. ATENOLOL [Concomitant]
  4. LORAZEPAM [Concomitant]
  5. ESTROGENS SOL/INJ [Concomitant]

REACTIONS (1)
  - BLOOD PRESSURE DIASTOLIC DECREASED [None]
